FAERS Safety Report 22018148 (Version 1)
Quarter: 2023Q1

REPORT INFORMATION
  Report Type: Spontaneous
  Country: None (occurrence: US)
  Receive Date: 20230221
  Receipt Date: 20230221
  Transmission Date: 20230418
  Serious: Yes (Other)
  Sender: FDA-Public Use
  Company Number: US-Walmart-2138274

PATIENT
  Sex: Female

DRUGS (1)
  1. STOOL SOFTENER EXTRA STRENGTH [Suspect]
     Active Substance: DOCUSATE SODIUM
     Indication: Constipation
     Route: 048

REACTIONS (5)
  - Abdominal discomfort [None]
  - Headache [None]
  - Nausea [None]
  - Vomiting [None]
  - Chest pain [None]
